FAERS Safety Report 16752685 (Version 1)
Quarter: 2019Q3

REPORT INFORMATION
  Report Type: Spontaneous
  Country: CN (occurrence: CN)
  Receive Date: 20190828
  Receipt Date: 20190828
  Transmission Date: 20191005
  Serious: Yes (Other)
  Sender: FDA-Public Use
  Company Number: CN-BAXTER-2019BAX016673

PATIENT
  Age: 32 Year
  Sex: Female
  Weight: 50 kg

DRUGS (8)
  1. SODIUM CHLORIDE. [Suspect]
     Active Substance: SODIUM CHLORIDE
     Indication: MEDICATION DILUTION
     Dosage: CYCLOPHOSPHAMIDE+ SODIUM CHLORIDE, THREE CHEMOTHERAPIES OF CE4-T4 PROTOCOL
     Route: 041
  2. SODIUM CHLORIDE. [Suspect]
     Active Substance: SODIUM CHLORIDE
     Dosage: CYCLOPHOSPHAMIDE 0.84G+ SODIUM CHLORIDE, FOURTH CHEMOTHERAPY OF CE4-T4 PROTOCOL
     Route: 041
     Dates: start: 20190806, end: 20190806
  3. PIRARUBICIN HYDROCHLORIDE [Suspect]
     Active Substance: PIRARUBICIN HYDROCHLORIDE
     Indication: BREAST CANCER FEMALE
     Dosage: PIRARUBICIN HYDROCHLORIDE+ GLUCOSE, THREE CHEMOTHERAPIES OF CE4-T4 PROTOCOL
     Route: 041
  4. GLUCOSE [Suspect]
     Active Substance: DEXTROSE
     Dosage: PIRARUBICIN HYDROCHLORIDE 70MG+ GLUCOSE, FOURTH CHEMOTHERAPY OF CE4-T4 PROTOCOL
     Route: 041
     Dates: start: 20190806, end: 20190806
  5. ENDOXAN [Suspect]
     Active Substance: CYCLOPHOSPHAMIDE
     Dosage: CYCLOPHOSPHAMIDE+ SODIUM CHLORIDE 60 ML, FOURTH CHEMOTHERAPY OF CE4-T4 PROTOCOL
     Route: 041
     Dates: start: 20190806, end: 20190806
  6. PIRARUBICIN HYDROCHLORIDE [Suspect]
     Active Substance: PIRARUBICIN HYDROCHLORIDE
     Dosage: PIRARUBICIN HYDROCHLORIDE+ GLUCOSE 70 ML, FOURTH CHEMOTHERAPY OF CE4-T4 PROTOCOL
     Route: 041
     Dates: start: 20190806, end: 20190806
  7. ENDOXAN [Suspect]
     Active Substance: CYCLOPHOSPHAMIDE
     Indication: BREAST CANCER FEMALE
     Dosage: CYCLOPHOSPHAMIDE+ SODIUM CHLORIDE, THREE CHEMOTHERAPIES OF CE4-T4 PROTOCOL
     Route: 041
  8. GLUCOSE [Suspect]
     Active Substance: DEXTROSE
     Indication: MEDICATION DILUTION
     Dosage: PIRARUBICIN HYDROCHLORIDE+ GLUCOSE, THREE CHEMOTHERAPIES OF CE4-T4 PROTOCOL
     Route: 041

REACTIONS (7)
  - Granulocytopenia [Unknown]
  - Invasive ductal breast carcinoma [Unknown]
  - Leukopenia [Unknown]
  - Haematocrit decreased [Unknown]
  - Bone marrow failure [Unknown]
  - Lymphopenia [Unknown]
  - Red blood cell count decreased [Unknown]

NARRATIVE: CASE EVENT DATE: 20190805
